FAERS Safety Report 8612227-3 (Version None)
Quarter: 2012Q3

REPORT INFORMATION
  Report Type: 
  Country: None (occurrence: None)
  Receive Date: 20120813
  Receipt Date: 20120813
  Transmission Date: 20120928
  Serious: Yes (Hospitalization)
  Sender: FDA-Public Use
  Company Number: None

PATIENT
  Age: 55 Year
  Sex: Male
  Weight: 54.4316 kg

DRUGS (5)
  1. PRAVASTATIN [Concomitant]
  2. METFORMIN HCL [Concomitant]
  3. METOPROLOL TARTRATE [Concomitant]
  4. HYDROCHLOROTHIAZIDE [Concomitant]
  5. LISINOPRIL 20MG WESTWARD INC [Suspect]
     Indication: HYPERTENSION
     Dosage: 1/2 TABLET DURING WEEK 1 PO
     Route: 048
     Dates: start: 20120722, end: 20120808

REACTIONS (5)
  - VOMITING [None]
  - ABDOMINAL PAIN [None]
  - DYSARTHRIA [None]
  - MUSCLE TIGHTNESS [None]
  - MUSCULAR WEAKNESS [None]
